FAERS Safety Report 9380302 (Version 1)
Quarter: 2013Q3

REPORT INFORMATION
  Report Type: Report from Study
  Country: US (occurrence: US)
  Receive Date: 20130702
  Receipt Date: 20130702
  Transmission Date: 20140515
  Serious: Yes (Hospitalization, Other)
  Sender: FDA-Public Use
  Company Number: US-PFIZER INC-HQ1181219SEP2000

PATIENT
  Age: 73 Year
  Sex: Male
  Weight: 76.4 kg

DRUGS (5)
  1. TEMSIROLIMUS [Suspect]
     Indication: RENAL CELL CARCINOMA
     Dosage: 250 MG, WEEKLY
     Route: 042
     Dates: start: 20000620, end: 20000905
  2. GLYBURIDE [Concomitant]
  3. MICRONASE [Concomitant]
     Dosage: UNK
     Route: 048
     Dates: start: 20000703
  4. MEGACE [Concomitant]
     Dosage: UNK
     Route: 048
     Dates: start: 20000627
  5. COUMADIN [Concomitant]
     Route: 048

REACTIONS (4)
  - Pancreatitis [Recovered/Resolved]
  - Dehydration [Recovered/Resolved]
  - Pneumonia [Recovered/Resolved]
  - Anaemia [Unknown]
